FAERS Safety Report 9025319 (Version 5)
Quarter: 2014Q2

REPORT INFORMATION
  Report Type: Spontaneous
  Country: US (occurrence: US)
  Receive Date: 20130122
  Receipt Date: 20140421
  Transmission Date: 20141212
  Serious: Yes (Hospitalization, Other)
  Sender: FDA-Public Use
  Company Number: US-009507513-1301USA009723

PATIENT
  Sex: Female
  Weight: 73.92 kg

DRUGS (7)
  1. FOSAMAX [Suspect]
     Indication: OSTEOPOROSIS
     Dosage: 10 MG, UNK
     Route: 048
     Dates: start: 20000403, end: 2008
  2. FOSAMAX [Suspect]
     Dosage: 70 MG, QW
     Route: 048
     Dates: start: 2000
  3. ALENDRONATE SODIUM [Suspect]
     Indication: OSTEOPOROSIS
     Dosage: 70 MG, UNK
     Route: 048
     Dates: start: 20080107, end: 20110420
  4. PROPOXYPHENE [Concomitant]
     Indication: OSTEOPOROSIS
     Dosage: UNK
     Dates: start: 2008, end: 2011
  5. VITAMIN D (UNSPECIFIED) [Concomitant]
     Indication: OSTEOPOROSIS
  6. CALCIUM (UNSPECIFIED) (+) VITAMIN D (UNSPECIFIED) [Concomitant]
     Dosage: UNK, BID
  7. VITAMINS (UNSPECIFIED) [Concomitant]
     Dosage: UNK

REACTIONS (41)
  - Femur fracture [Unknown]
  - Intramedullary rod insertion [Unknown]
  - Femur fracture [Unknown]
  - Knee arthroplasty [Unknown]
  - Intervertebral disc operation [Unknown]
  - Thyroidectomy [Unknown]
  - Anaemia postoperative [Recovering/Resolving]
  - Ankle fracture [Unknown]
  - Low turnover osteopathy [Unknown]
  - Tooth extraction [Unknown]
  - Tooth extraction [Unknown]
  - Hypothyroidism [Unknown]
  - Arthritis [Unknown]
  - Pain [Unknown]
  - Hypertension [Unknown]
  - Eye infection [Unknown]
  - Pain [Unknown]
  - Thyroid disorder [Unknown]
  - Pain [Unknown]
  - Fall [Unknown]
  - Rib fracture [Recovering/Resolving]
  - Fracture nonunion [Unknown]
  - Osteoarthritis [Unknown]
  - Syncope [Unknown]
  - Thyroid neoplasm [Unknown]
  - Tilt table test positive [Unknown]
  - Thyroid neoplasm [Unknown]
  - Bunion operation [Unknown]
  - Ulcer [Unknown]
  - Cataract [Unknown]
  - Diverticulum [Unknown]
  - Haemorrhoids [Unknown]
  - Hepatitis [Unknown]
  - Urinary incontinence [Unknown]
  - Speech disorder [Unknown]
  - Pubis fracture [Unknown]
  - Foot fracture [Unknown]
  - Shoulder operation [Unknown]
  - Pruritus [Unknown]
  - Gastrooesophageal reflux disease [Unknown]
  - Bursitis [Not Recovered/Not Resolved]
